FAERS Safety Report 23259279 (Version 1)
Quarter: 2023Q4

REPORT INFORMATION
  Report Type: Spontaneous
  Country: US (occurrence: US)
  Receive Date: 20231204
  Receipt Date: 20231204
  Transmission Date: 20240109
  Serious: Yes (Other)
  Sender: FDA-Public Use
  Company Number: US-PFIZER INC-PV202300193715

PATIENT
  Age: 33 Year
  Sex: Female

DRUGS (1)
  1. SOLU-MEDROL [Suspect]
     Active Substance: METHYLPREDNISOLONE SODIUM SUCCINATE
     Dosage: UNK

REACTIONS (9)
  - Multiple sclerosis [Recovered/Resolved]
  - Intervertebral disc protrusion [Unknown]
  - Paraesthesia [Recovered/Resolved]
  - Feeling abnormal [Recovered/Resolved]
  - Flushing [Unknown]
  - Gait disturbance [Unknown]
  - Dysarthria [Unknown]
  - Photosensitivity reaction [Unknown]
  - Hypoaesthesia [Unknown]
